FAERS Safety Report 4822449-5 (Version None)
Quarter: 2005Q4

REPORT INFORMATION
  Report Type: 
  Country: None (occurrence: None)
  Receive Date: 20051104
  Receipt Date: 20051102
  Transmission Date: 20060501
  Serious: Yes (Hospitalization, Other)
  Sender: FDA-Public Use
  Company Number: HQWYE828520NAY05

PATIENT
  Age: 34 Year
  Sex: Male

DRUGS (14)
  1. EFFEXOR [Suspect]
     Indication: DEPRESSION
     Dosage: 37.5 + 75 + 225 + 150 * 112.5 + 75 MG 1X PER 1 DAY ORAL
     Route: 048
     Dates: start: 20040922, end: 20040923
  2. EFFEXOR [Suspect]
     Indication: DEPRESSION
     Dosage: 37.5 + 75 + 225 + 150 * 112.5 + 75 MG 1X PER 1 DAY ORAL
     Route: 048
     Dates: start: 20040924, end: 20040927
  3. EFFEXOR [Suspect]
     Indication: DEPRESSION
     Dosage: 37.5 + 75 + 225 + 150 * 112.5 + 75 MG 1X PER 1 DAY ORAL
     Route: 048
     Dates: start: 20041019, end: 20041122
  4. EFFEXOR [Suspect]
     Indication: DEPRESSION
     Dosage: 37.5 + 75 + 225 + 150 * 112.5 + 75 MG 1X PER 1 DAY ORAL
     Route: 048
     Dates: start: 20041123, end: 20041124
  5. EFFEXOR [Suspect]
     Indication: DEPRESSION
     Dosage: 37.5 + 75 + 225 + 150 * 112.5 + 75 MG 1X PER 1 DAY ORAL
     Route: 048
     Dates: start: 20041125, end: 20041127
  6. EFFEXOR [Suspect]
     Indication: DEPRESSION
     Dosage: 37.5 + 75 + 225 + 150 * 112.5 + 75 MG 1X PER 1 DAY ORAL
     Route: 048
     Dates: start: 20041128, end: 20041128
  7. EFFEXOR [Suspect]
     Indication: DEPRESSION
     Dosage: 37.5 + 75 + 225 + 150 * 112.5 + 75 MG 1X PER 1 DAY ORAL
     Route: 048
     Dates: start: 20041129, end: 20041202
  8. LITHIUM CARBONATE [Suspect]
     Dosage: 225 + 450 + 675 + 900 + 450 + 225 MG 1X PER 1 DAY ORAL
     Route: 048
     Dates: start: 20041027, end: 20041030
  9. LITHIUM CARBONATE [Suspect]
     Dosage: 225 + 450 + 675 + 900 + 450 + 225 MG 1X PER 1 DAY ORAL
     Route: 048
     Dates: start: 20041031, end: 20041103
  10. LITHIUM CARBONATE [Suspect]
     Dosage: 225 + 450 + 675 + 900 + 450 + 225 MG 1X PER 1 DAY ORAL
     Route: 048
     Dates: start: 20041104, end: 20041111
  11. LITHIUM CARBONATE [Suspect]
     Dosage: 225 + 450 + 675 + 900 + 450 + 225 MG 1X PER 1 DAY ORAL
     Route: 048
     Dates: start: 20041119, end: 20041120
  12. LITHIUM CARBONATE [Suspect]
     Dosage: 225 + 450 + 675 + 900 + 450 + 225 MG 1X PER 1 DAY ORAL
     Route: 048
     Dates: start: 20041112, end: 20041120
  13. LITHIUM CARBONATE [Suspect]
     Dosage: 225 + 450 + 675 + 900 + 450 + 225 MG 1X PER 1 DAY ORAL
     Route: 048
     Dates: start: 20041121, end: 20041122
  14. SEROQUEL [Concomitant]

REACTIONS (3)
  - COORDINATION ABNORMAL [None]
  - DRUG INTERACTION [None]
  - MUSCULOSKELETAL STIFFNESS [None]
